FAERS Safety Report 7271759-3 (Version None)
Quarter: 2011Q1

REPORT INFORMATION
  Report Type: 
  Country: None (occurrence: None)
  Receive Date: 20110203
  Receipt Date: 20110124
  Transmission Date: 20110831
  Serious: Yes (Life-Threatening, Hospitalization)
  Sender: FDA-Public Use
  Company Number: FR-BRISTOL-MYERS SQUIBB COMPANY-15519630

PATIENT
  Age: 87 Year
  Sex: Female

DRUGS (7)
  1. GLUCOPHAGE [Suspect]
     Indication: TYPE 2 DIABETES MELLITUS
     Route: 048
     Dates: end: 20101115
  2. OLMETEC [Suspect]
     Indication: HYPERTENSION
     Dosage: 40MG TABS
     Route: 048
     Dates: end: 20101115
  3. AMLOR [Suspect]
     Indication: HYPERTENSION
     Dosage: 5MG CAPS
     Route: 048
     Dates: end: 20101015
  4. LASIX [Suspect]
     Indication: HYPERTENSION
     Route: 048
     Dates: end: 20101115
  5. TANAKAN [Suspect]
     Route: 048
     Dates: end: 20101015
  6. SMECTA [Concomitant]
     Indication: GASTROINTESTINAL DISORDER
     Dates: start: 20101114
  7. SPASFON [Concomitant]
     Indication: GASTROINTESTINAL DISORDER
     Dates: start: 20101114

REACTIONS (7)
  - RENAL FAILURE ACUTE [None]
  - ACCIDENTAL OVERDOSE [None]
  - HYPERKALAEMIA [None]
  - CARDIO-RESPIRATORY ARREST [None]
  - COMA [None]
  - DIARRHOEA [None]
  - LACTIC ACIDOSIS [None]
